FAERS Safety Report 8511636 (Version 3)
Quarter: 2013Q2

REPORT INFORMATION
  Report Type: Spontaneous
  Country: US (occurrence: US)
  Receive Date: 20120413
  Receipt Date: 20130418
  Transmission Date: 20140414
  Serious: No
  Sender: FDA-Public Use
  Company Number: US-ASTRAZENECA-2011SE73778

PATIENT
  Age: 52 Year
  Sex: Female

DRUGS (1)
  1. NEXIUM [Suspect]
     Route: 048

REACTIONS (7)
  - Osteoporosis [Unknown]
  - Road traffic accident [Unknown]
  - Nasopharyngitis [Unknown]
  - Memory impairment [Unknown]
  - Ill-defined disorder [Unknown]
  - Malaise [Unknown]
  - Drug dose omission [Unknown]
